FAERS Safety Report 13116793 (Version 11)
Quarter: 2017Q3

REPORT INFORMATION
  Report Type: Spontaneous
  Country: US (occurrence: US)
  Receive Date: 20170116
  Receipt Date: 20170721
  Transmission Date: 20171127
  Serious: Yes (Hospitalization, Other)
  Sender: FDA-Public Use
  Company Number: US-PFIZER INC-2016587032

PATIENT
  Age: 78 Year
  Sex: Male

DRUGS (28)
  1. AMLODIPINE [Concomitant]
     Active Substance: AMLODIPINE BESYLATE
     Dosage: 5 MG, UNK
  2. POLYMYXIN B SULFATE. [Concomitant]
     Active Substance: POLYMYXIN B SULFATE
     Dosage: UNK (10,000 UNIT-TRIMETHOPRIM)
  3. TAMSULOSIN [Concomitant]
     Active Substance: TAMSULOSIN
     Dosage: 0.4 MG, UNK
  4. SUTENT [Suspect]
     Active Substance: SUNITINIB MALATE
     Dosage: 50 MG, CYCLIC (APPROXIMATELY 2 WEEKS ON 1 WEEK OFF)
     Route: 048
     Dates: start: 20170131, end: 2017
  5. DUTASTERIDE. [Concomitant]
     Active Substance: DUTASTERIDE
     Dosage: 0.5 MG, UNK
  6. FLOMAX [Concomitant]
     Active Substance: TAMSULOSIN HYDROCHLORIDE
     Dosage: UNK
  7. KEFLEX [Concomitant]
     Active Substance: CEPHALEXIN
     Dosage: UNK
  8. VASOTEC [Concomitant]
     Active Substance: ENALAPRIL MALEATE
     Dosage: 20 MG, UNK
  9. ACETAMINOPHEN W/HYDROCODONE [Concomitant]
     Active Substance: ACETAMINOPHEN\HYDROCODONE
     Dosage: UNK
  10. PREDNISONE. [Concomitant]
     Active Substance: PREDNISONE
     Dosage: 20 MG, UNK
  11. CEPHALEXIN. [Concomitant]
     Active Substance: CEPHALEXIN
     Dosage: 500 MG, UNK
  12. SUTENT [Suspect]
     Active Substance: SUNITINIB MALATE
     Indication: NEUROENDOCRINE TUMOUR
     Dosage: 50 MG, CYCLIC, (2 WEEKS ON/1 WEEK OFF)
     Dates: start: 20161227, end: 20170130
  13. SUTENT [Suspect]
     Active Substance: SUNITINIB MALATE
     Dosage: 37.5 MG, CYCLIC (1 WEEK ON AND 1 WEEK OFF)
     Dates: start: 20170517
  14. LEVAQUIN [Concomitant]
     Active Substance: LEVOFLOXACIN
     Dosage: 500 MG, UNK
  15. TRAMADOL. [Concomitant]
     Active Substance: TRAMADOL
     Dosage: 50 MG, UNK
  16. SUTENT [Suspect]
     Active Substance: SUNITINIB MALATE
     Dosage: 37.5 MG, CYCLIC (1 WEEK ON AND 1 WEEK OFF)
     Dates: start: 2017
  17. CRESTOR [Concomitant]
     Active Substance: ROSUVASTATIN CALCIUM
     Dosage: 10 MG, UNK
  18. MECLIZINE [Concomitant]
     Active Substance: MECLIZINE HYDROCHLORIDE
     Dosage: 25 MG, UNK
  19. METOCLOPRAMIDE. [Concomitant]
     Active Substance: METOCLOPRAMIDE
     Dosage: 10 MG, UNK
  20. OXYBUTYNIN CHLORIDE. [Concomitant]
     Active Substance: OXYBUTYNIN CHLORIDE
     Dosage: 10 MG, UNK
  21. AMOXICILLIN. [Concomitant]
     Active Substance: AMOXICILLIN
     Dosage: 500 MG, UNK
  22. CRESTOR [Concomitant]
     Active Substance: ROSUVASTATIN CALCIUM
     Dosage: 5 MG, UNK
  23. AMARYL [Concomitant]
     Active Substance: GLIMEPIRIDE
     Dosage: 4 MG, UNK
  24. ZOFRAN [Concomitant]
     Active Substance: ONDANSETRON HYDROCHLORIDE
     Dosage: 8 MG, UNK
  25. HYDROCODONE [Concomitant]
     Active Substance: HYDROCODONE
     Dosage: UNK
  26. BETAMETHASONE DIPROPIONATE. [Concomitant]
     Active Substance: BETAMETHASONE DIPROPIONATE
     Dosage: UNK
     Route: 061
  27. LANTUS [Concomitant]
     Active Substance: INSULIN GLARGINE
     Dosage: 3 ML, UNK
     Route: 058
  28. PRILOSEC [Concomitant]
     Active Substance: OMEPRAZOLE MAGNESIUM
     Dosage: 20 MG, UNK

REACTIONS (22)
  - Urinary bladder haemorrhage [Not Recovered/Not Resolved]
  - Neoplasm progression [Unknown]
  - Product use in unapproved indication [Unknown]
  - Dry skin [Not Recovered/Not Resolved]
  - Abdominal pain upper [Not Recovered/Not Resolved]
  - Pruritus [Unknown]
  - Platelet count decreased [Unknown]
  - Thrombocytopenia [Recovering/Resolving]
  - Dyspepsia [Unknown]
  - Pain [Unknown]
  - Blood urine [Not Recovered/Not Resolved]
  - Abnormal faeces [Not Recovered/Not Resolved]
  - Fatigue [Not Recovered/Not Resolved]
  - Mucous stools [Not Recovered/Not Resolved]
  - Dysuria [Unknown]
  - Dysgeusia [Unknown]
  - Abdominal distension [Unknown]
  - Ageusia [Unknown]
  - Bone pain [Unknown]
  - Headache [Recovered/Resolved]
  - Decreased appetite [Unknown]
  - Epistaxis [Recovering/Resolving]

NARRATIVE: CASE EVENT DATE: 20161227
